FAERS Safety Report 5724398-7 (Version None)
Quarter: 2008Q2

REPORT INFORMATION
  Report Type: 
  Country: None (occurrence: None)
  Receive Date: 20080429
  Receipt Date: 20080415
  Transmission Date: 20081010
  Serious: Yes (Hospitalization)
  Sender: FDA-Public Use
  Company Number: B0517887A

PATIENT
  Age: 69 Year
  Sex: Male

DRUGS (1)
  1. MALARONE [Suspect]
     Indication: PROPHYLACTIC CHEMOTHERAPY

REACTIONS (4)
  - HEADACHE [None]
  - MALARIA [None]
  - PLATELET COUNT DECREASED [None]
  - PYREXIA [None]
